FAERS Safety Report 5707160-0 (Version None)
Quarter: 2008Q2

REPORT INFORMATION
  Report Type: 
  Country: None (occurrence: None)
  Receive Date: 20080416
  Receipt Date: 20080407
  Transmission Date: 20081010
  Serious: Yes (Other)
  Sender: FDA-Public Use
  Company Number: PHHO2007VE12573

PATIENT
  Age: 51 Year
  Sex: Female

DRUGS (8)
  1. EXELON [Suspect]
     Dosage: 1.5 MG
     Route: 048
  2. EXELON [Suspect]
     Dosage: 3.5 MG
     Route: 048
  3. EXELON [Suspect]
     Dosage: 4.5 MG, QD
     Dates: start: 20070717
  4. EXELON [Suspect]
     Dosage: 1.5 MG, QD
  5. FENOBARBITAL [Concomitant]
  6. QUAL [Concomitant]
  7. GINKGO BILOBA [Concomitant]
  8. CHOPHYTOL [Concomitant]

REACTIONS (6)
  - DIARRHOEA [None]
  - HYPERHIDROSIS [None]
  - HYPOTENSION [None]
  - MONONUCLEOSIS SYNDROME [None]
  - STOMACH DISCOMFORT [None]
  - VOMITING [None]
